FAERS Safety Report 7234593-6 (Version None)
Quarter: 2011Q1

REPORT INFORMATION
  Report Type: 
  Country: None (occurrence: None)
  Receive Date: 20110120
  Receipt Date: 20110112
  Transmission Date: 20110831
  Serious: Yes (Hospitalization)
  Sender: FDA-Public Use
  Company Number: US-BIOGENIDEC-2011BI001512

PATIENT
  Age: 40 Year
  Sex: Male

DRUGS (1)
  1. TYSABRI [Suspect]
     Indication: MULTIPLE SCLEROSIS
     Route: 042
     Dates: start: 20080709

REACTIONS (6)
  - WOUND INFECTION [None]
  - TOXIC SHOCK SYNDROME [None]
  - ANIMAL BITE [None]
  - CELLULITIS [None]
  - BETA HAEMOLYTIC STREPTOCOCCAL INFECTION [None]
  - EXCORIATION [None]
